FAERS Safety Report 21028549 (Version 2)
Quarter: 2022Q3

REPORT INFORMATION
  Report Type: Other
  Country: LB (occurrence: LB)
  Receive Date: 20220630
  Receipt Date: 20220715
  Transmission Date: 20221027
  Serious: Yes (Other)
  Sender: FDA-Public Use
  Company Number: LB-002147023-NVSC2022LB144770

PATIENT
  Age: 63 Year
  Sex: Male
  Weight: 80 kg

DRUGS (2)
  1. LUCENTIS [Suspect]
     Active Substance: RANIBIZUMAB
     Indication: Diabetic retinal oedema
     Dosage: 20 MILLIGRAM PER MILLILITRE
     Route: 050
     Dates: start: 202002
  2. LUCENTIS [Suspect]
     Active Substance: RANIBIZUMAB
     Dosage: 20 MILLIGRAM PER MILLILITRE
     Route: 050
     Dates: start: 20200805, end: 20200805

REACTIONS (3)
  - Eye haemorrhage [Recovered/Resolved]
  - Vision blurred [Not Recovered/Not Resolved]
  - Product availability issue [Unknown]

NARRATIVE: CASE EVENT DATE: 20220301
